FAERS Safety Report 17411752 (Version 1)
Quarter: 2020Q1

REPORT INFORMATION
  Report Type: Spontaneous
  Country: ES (occurrence: ES)
  Receive Date: 20200213
  Receipt Date: 20200213
  Transmission Date: 20200409
  Serious: Yes (Hospitalization)
  Sender: FDA-Public Use
  Company Number: ES-TEVA-2020-ES-1184680

PATIENT
  Age: 69 Year
  Sex: Female

DRUGS (7)
  1. SEVREDOL 10 MG COMPRIMIDOS RECUBIERTOS CON PELICULA [Concomitant]
     Dosage: 10 MG
  2. OMEPRAZOL [Concomitant]
     Active Substance: OMEPRAZOLE
     Dosage: 20 MG
  3. AMITRIPTILINA (395A) [Concomitant]
     Active Substance: AMITRIPTYLINE
     Dosage: 25 MG
     Dates: start: 20190626
  4. LOSARTAN/HIDROCLOROTIAZIDA 50 MG/12,5 MG COMPRIMIDO [Concomitant]
     Dosage: 50 / 12.5 MG DAILY
     Dates: start: 20130122
  5. VOLTAREN 50 MG COMPRIMIDOS GASTRORRESISTENTES [Concomitant]
     Dosage: 50 MG
  6. MEGESTROL (2338A) [Suspect]
     Active Substance: MEGESTROL
     Dosage: 1 DOSAGE FORM
     Dates: start: 20190311, end: 20190823
  7. MST CONTINUS 10 MG COMPRIMIDOS DE LIBERACION PROLONGADA [Concomitant]
     Dosage: 10 MG

REACTIONS (1)
  - Secondary adrenocortical insufficiency [Recovered/Resolved]

NARRATIVE: CASE EVENT DATE: 20190822
